FAERS Safety Report 13128171 (Version 1)
Quarter: 2017Q1

REPORT INFORMATION
  Report Type: Spontaneous
  Country: AT (occurrence: AT)
  Receive Date: 20170118
  Receipt Date: 20170118
  Transmission Date: 20170428
  Serious: Yes (Hospitalization)
  Sender: FDA-Public Use
  Company Number: AT-PFIZER INC-2017019162

PATIENT
  Age: 80 Year
  Sex: Male

DRUGS (2)
  1. SEROQUEL [Suspect]
     Active Substance: QUETIAPINE FUMARATE
     Dosage: 100 MG, 2X/DAY, LATE AFTERNOONS AND EVENINGS
  2. LYRICA [Suspect]
     Active Substance: PREGABALIN
     Dosage: 225 MG, 1X/DAY, IN THE EVENINGS

REACTIONS (4)
  - Dementia [Unknown]
  - Electrocardiogram QT prolonged [Unknown]
  - Confusional state [Unknown]
  - Urinary tract infection [Unknown]
